FAERS Safety Report 12276196 (Version 1)
Quarter: 2016Q2

REPORT INFORMATION
  Report Type: Spontaneous
  Country: CN (occurrence: CN)
  Receive Date: 20160418
  Receipt Date: 20160418
  Transmission Date: 20160815
  Serious: Yes (Other)
  Sender: FDA-Public Use
  Company Number: CN-BAYER-2016-067782

PATIENT
  Sex: Male

DRUGS (2)
  1. MEROPENEM. [Concomitant]
     Active Substance: MEROPENEM
     Dosage: UNK
     Dates: start: 201603, end: 201603
  2. AVELOX [Suspect]
     Active Substance: MOXIFLOXACIN HYDROCHLORIDE
     Indication: PNEUMONIA
     Dosage: UNK
     Dates: start: 201603, end: 201603

REACTIONS (15)
  - Coagulation test abnormal [None]
  - Laboratory test abnormal [Recovering/Resolving]
  - Platelet count decreased [Recovering/Resolving]
  - Fibrin D dimer increased [Recovering/Resolving]
  - Poor quality sleep [None]
  - Myocardial necrosis marker increased [Recovering/Resolving]
  - Blood pressure decreased [Recovering/Resolving]
  - Headache [Recovering/Resolving]
  - White blood cell count decreased [Recovering/Resolving]
  - Liver function test increased [Recovering/Resolving]
  - Tendonitis [Recovering/Resolving]
  - Abdominal discomfort [Recovering/Resolving]
  - Gait disturbance [None]
  - Renal function test abnormal [Recovering/Resolving]
  - Pain in extremity [Recovering/Resolving]

NARRATIVE: CASE EVENT DATE: 2016
